FAERS Safety Report 8251966-3 (Version None)
Quarter: 2012Q2

REPORT INFORMATION
  Report Type: 
  Country: None (occurrence: None)
  Receive Date: 20120402
  Receipt Date: 20120325
  Transmission Date: 20120825
  Serious: Yes (Other)
  Sender: FDA-Public Use
  Company Number: PHHY2012US026446

PATIENT
  Age: 27 Year
  Sex: Male

DRUGS (4)
  1. RISPERIDONE [Concomitant]
     Dosage: 3.5 MG, UNK
  2. PAROXETINE [Interacting]
     Dosage: 30 MG, UNK
  3. ZOLPIDEM [Suspect]
     Indication: INSOMNIA
     Dosage: 10 MG, UNK
  4. LITHIUM CARBONATE [Concomitant]
     Dosage: 600 MG, UNK

REACTIONS (7)
  - VISION BLURRED [None]
  - MANIA [None]
  - FEELING DRUNK [None]
  - AGITATION [None]
  - GRANDIOSITY [None]
  - DRUG INTERACTION [None]
  - MUSCULAR WEAKNESS [None]
